FAERS Safety Report 8341898-4 (Version None)
Quarter: 2012Q2

REPORT INFORMATION
  Report Type: 
  Country: None (occurrence: None)
  Receive Date: 20120503
  Receipt Date: 20120420
  Transmission Date: 20120825
  Serious: Yes (Other)
  Sender: FDA-Public Use
  Company Number: JPI-P-020778

PATIENT
  Age: 23 Year
  Sex: Male

DRUGS (1)
  1. XYREM [Suspect]
     Indication: CATAPLEXY
     Dosage: 6 GM (3 GM, 2 IN 1 D), ORAL
     Route: 048
     Dates: start: 20120331

REACTIONS (17)
  - INADEQUATE ANALGESIA [None]
  - INCORRECT DOSE ADMINISTERED [None]
  - HEADACHE [None]
  - MALAISE [None]
  - BLOOD PRESSURE INCREASED [None]
  - HYPOAESTHESIA [None]
  - HEART RATE INCREASED [None]
  - CONFUSIONAL STATE [None]
  - MUSCLE SPASMS [None]
  - VOMITING [None]
  - DYSPNOEA [None]
  - NAUSEA [None]
  - CHEST PAIN [None]
  - PARAESTHESIA [None]
  - TINNITUS [None]
  - INSOMNIA [None]
  - MUSCLE TWITCHING [None]
